FAERS Safety Report 9438437 (Version 1)
Quarter: 2013Q3

REPORT INFORMATION
  Report Type: Spontaneous
  Country: US (occurrence: US)
  Receive Date: 20130802
  Receipt Date: 20130802
  Transmission Date: 20140515
  Serious: Yes (Death, Other)
  Sender: FDA-Public Use
  Company Number: US-JNJFOC-20130717923

PATIENT
  Age: 63 Year
  Sex: Male

DRUGS (7)
  1. CLADRIBINE [Suspect]
     Indication: MANTLE CELL LYMPHOMA
     Dosage: FOR 5 DAYS (-10 TO -6)
     Route: 042
  2. THIOTEPA [Suspect]
     Indication: MANTLE CELL LYMPHOMA
     Dosage: FOR 3 DAYS (-5 TO -3)
     Route: 042
  3. THIOTEPA [Suspect]
     Indication: MANTLE CELL LYMPHOMA
     Route: 042
  4. RABBIT ANTITHYMOCYTE GLOBULIN [Suspect]
     Indication: MANTLE CELL LYMPHOMA
     Dosage: ON DAY -5
     Route: 065
  5. GRANULOCYTE-COLONY STIMULATING FACTOR [Concomitant]
     Route: 065
  6. CYCLOSPORINE [Concomitant]
     Indication: IMMUNOSUPPRESSION
     Route: 042
  7. CYCLOSPORINE [Concomitant]
     Indication: IMMUNOSUPPRESSION
     Route: 042

REACTIONS (7)
  - Aspergillus infection [Fatal]
  - Cytomegalovirus colitis [Fatal]
  - Graft versus host disease [Fatal]
  - Thrombocytopenia [Unknown]
  - Neutropenia [Unknown]
  - Anaemia [Unknown]
  - Off label use [Unknown]
